FAERS Safety Report 9482766 (Version 2)
Quarter: 2013Q3

REPORT INFORMATION
  Report Type: Report from Study
  Country: JP (occurrence: JP)
  Receive Date: 20130828
  Receipt Date: 20130828
  Transmission Date: 20140515
  Serious: Yes (Hospitalization)
  Sender: FDA-Public Use
  Company Number: JP-JNJFOC-20130115658

PATIENT
  Age: 54 Year
  Sex: Female
  Weight: 64 kg

DRUGS (21)
  1. REMICADE [Suspect]
     Indication: COLITIS ULCERATIVE
     Route: 042
     Dates: start: 20110816
  2. REMICADE [Suspect]
     Indication: COLITIS ULCERATIVE
     Dosage: 7TH DOSE
     Route: 042
     Dates: start: 20120328
  3. REMICADE [Suspect]
     Indication: COLITIS ULCERATIVE
     Route: 042
     Dates: start: 20120131
  4. REMICADE [Suspect]
     Indication: COLITIS ULCERATIVE
     Route: 042
     Dates: start: 20111206
  5. REMICADE [Suspect]
     Indication: COLITIS ULCERATIVE
     Route: 042
     Dates: start: 20111011
  6. REMICADE [Suspect]
     Indication: COLITIS ULCERATIVE
     Route: 042
     Dates: start: 20120604
  7. REMICADE [Suspect]
     Indication: COLITIS ULCERATIVE
     Route: 042
     Dates: start: 20110719
  8. REMICADE [Suspect]
     Indication: COLITIS ULCERATIVE
     Route: 042
     Dates: start: 20110629
  9. REMICADE [Suspect]
     Indication: COLITIS ULCERATIVE
     Route: 042
     Dates: start: 20120731
  10. REMICADE [Suspect]
     Indication: COLITIS ULCERATIVE
     Route: 042
     Dates: start: 20120926
  11. REMICADE [Suspect]
     Indication: COLITIS ULCERATIVE
     Route: 042
     Dates: start: 20121127
  12. IMURAN [Suspect]
     Indication: COLITIS ULCERATIVE
     Route: 048
     Dates: start: 201105
  13. ISCOTIN [Concomitant]
     Indication: ANTIBIOTIC PROPHYLAXIS
     Route: 048
     Dates: start: 20100622, end: 20111206
  14. PENTASA [Concomitant]
     Indication: COLITIS ULCERATIVE
     Route: 048
     Dates: start: 201105
  15. PYDOXAL [Concomitant]
     Route: 048
  16. GASTER D [Concomitant]
     Indication: PROPHYLAXIS
     Route: 048
  17. BERIZYM [Concomitant]
     Indication: PROPHYLAXIS
     Route: 048
  18. DIOVAN [Concomitant]
     Indication: HYPERTENSION
     Route: 048
  19. BIO-THREE [Concomitant]
     Indication: PROPHYLAXIS
     Dosage: 3TAB
     Route: 048
  20. MERISLON [Concomitant]
     Indication: DIZZINESS
     Route: 048
  21. GASMOTIN [Concomitant]
     Indication: PROPHYLAXIS
     Route: 048

REACTIONS (1)
  - Appendicitis [Recovered/Resolved]
